FAERS Safety Report 7418352-7 (Version None)
Quarter: 2011Q2

REPORT INFORMATION
  Report Type: 
  Country: None (occurrence: None)
  Receive Date: 20110415
  Receipt Date: 20110414
  Transmission Date: 20111010
  Serious: Yes (Hospitalization)
  Sender: FDA-Public Use
  Company Number: A0923027A

PATIENT
  Sex: Male

DRUGS (2)
  1. AVANDARYL [Suspect]
     Route: 048
     Dates: start: 20060728, end: 20090901
  2. AVANDIA [Suspect]
     Route: 048
     Dates: start: 20090929, end: 20100111

REACTIONS (1)
  - MYOCARDIAL INFARCTION [None]
